FAERS Safety Report 6152088-8 (Version None)
Quarter: 2009Q2

REPORT INFORMATION
  Report Type: 
  Country: None (occurrence: None)
  Receive Date: 20090410
  Receipt Date: 20090326
  Transmission Date: 20091009
  Serious: Yes (Hospitalization)
  Sender: FDA-Public Use
  Company Number: IL-GENENTECH-280639

PATIENT
  Age: 49 Year
  Sex: Female

DRUGS (5)
  1. MABTHERA [Suspect]
     Indication: SJOGREN'S SYNDROME
     Dosage: 1000 MG, Q2W
     Route: 042
     Dates: start: 20070901, end: 20070901
  2. SOLU-MEDROL [Concomitant]
     Indication: DRUG USE FOR UNKNOWN INDICATION
  3. METHOTREXATE [Concomitant]
     Indication: DRUG USE FOR UNKNOWN INDICATION
  4. PREDNISONE TAB [Concomitant]
     Indication: DRUG USE FOR UNKNOWN INDICATION
  5. PLAQUENIL [Concomitant]
     Indication: DRUG USE FOR UNKNOWN INDICATION

REACTIONS (7)
  - DERMATITIS ALLERGIC [None]
  - DRUG INEFFECTIVE [None]
  - DYSPNOEA [None]
  - HAEMATURIA [None]
  - HEADACHE [None]
  - PROTEINURIA [None]
  - SERUM SICKNESS [None]
